FAERS Safety Report 4836548-5 (Version None)
Quarter: 2005Q4

REPORT INFORMATION
  Report Type: 
  Country: None (occurrence: None)
  Receive Date: 20051121
  Receipt Date: 20051107
  Transmission Date: 20060501
  Serious: Yes (Death)
  Sender: FDA-Public Use
  Company Number: 2005153193

PATIENT
  Age: 80 Year
  Sex: Female
  Weight: 72 kg

DRUGS (7)
  1. LYRICA [Suspect]
     Indication: BACK PAIN
     Dosage: 75 MG, ORAL
     Route: 048
  2. APROVEL (IRBESARTAN) [Concomitant]
  3. ALDOMET [Concomitant]
  4. LASIX [Concomitant]
  5. DAFLON (DIOSMIN) [Concomitant]
  6. LORENIN (LORAZEPAM) [Concomitant]
  7. FOSAMAX [Concomitant]

REACTIONS (5)
  - CONDITION AGGRAVATED [None]
  - HYPERTENSION [None]
  - HYPOTENSION [None]
  - LOSS OF CONSCIOUSNESS [None]
  - VENTRICULAR HYPERTROPHY [None]
